FAERS Safety Report 9846873 (Version 2)
Quarter: 2015Q2

REPORT INFORMATION
  Report Type: Spontaneous
  Country: DK (occurrence: DK)
  Receive Date: 20140127
  Receipt Date: 20150401
  Transmission Date: 20150821
  Serious: Yes (Life-Threatening, Hospitalization, Other)
  Sender: FDA-Public Use
  Company Number: DK-PFIZER INC-2014022349

PATIENT
  Age: 69 Year
  Sex: Male

DRUGS (6)
  1. FLUOROURACIL. [Suspect]
     Active Substance: FLUOROURACIL
     Indication: METASTASES TO LIVER
     Dosage: 1 DF, APPROXIMATELY EVERY OTHER WEEK (EVERY 14TH DAY)
     Route: 042
     Dates: start: 20130115, end: 20130505
  2. OXALIPLATIN. [Concomitant]
     Active Substance: OXALIPLATIN
     Indication: METASTASES TO LIVER
     Dosage: UNK
     Route: 042
     Dates: start: 20130115, end: 20130318
  3. INNOHEP [Concomitant]
     Active Substance: TINZAPARIN SODIUM
     Indication: ARRHYTHMIA
     Dosage: 1 DF (SYRINGE), DAILY
     Route: 058
     Dates: start: 20130301, end: 201312
  4. CALCIUMFOLINAT [Concomitant]
     Active Substance: LEUCOVORIN CALCIUM
     Indication: METASTASES TO LIVER
     Dates: start: 20130115
  5. MAREVAN [Concomitant]
     Active Substance: WARFARIN SODIUM
     Indication: ARRHYTHMIA
     Dosage: 3-4 TABLETS DAILY
     Route: 048
     Dates: end: 20130301
  6. FLUOROURACIL. [Suspect]
     Active Substance: FLUOROURACIL
     Dosage: 1 DF, APPROXIMATELY EVERY OTHER WEEK (EVERY 14TH DAY)
     Route: 042
     Dates: start: 2013, end: 20130617

REACTIONS (2)
  - Cardiac arrest [Recovered/Resolved]
  - Cardiac pacemaker insertion [Recovered/Resolved]

NARRATIVE: CASE EVENT DATE: 20130621
